FAERS Safety Report 10993484 (Version 2)
Quarter: 2022Q2

REPORT INFORMATION
  Report Type: Spontaneous
  Country: NO (occurrence: NO)
  Receive Date: 20150407
  Receipt Date: 20220601
  Transmission Date: 20220721
  Serious: Yes (Other)
  Sender: FDA-Public Use
  Company Number: None

PATIENT
  Age: 3 Year
  Sex: Female

DRUGS (2)
  1. CARBOPLATIN [Suspect]
     Active Substance: CARBOPLATIN
     Indication: Medulloblastoma
     Dosage: UNK
  2. ETOPOSIDE [Suspect]
     Active Substance: ETOPOSIDE
     Indication: Medulloblastoma
     Dosage: UNK

REACTIONS (6)
  - Cholecystitis [Unknown]
  - Cholangitis [Unknown]
  - Renal impairment [Unknown]
  - Bone marrow failure [Recovered/Resolved]
  - Cholangitis infective [Recovering/Resolving]
  - Cholecystitis infective [Recovering/Resolving]
